FAERS Safety Report 5553389-4 (Version None)
Quarter: 2007Q4

REPORT INFORMATION
  Report Type: 
  Country: None (occurrence: None)
  Receive Date: 20071130
  Receipt Date: 20070818
  Transmission Date: 20080405
  Serious: No
  Sender: FDA-Public Use
  Company Number: US200708004126

PATIENT
  Age: 70 Year
  Sex: Female

DRUGS (1)
  1. BYETTA [Suspect]
     Dosage: 10 UG, SUBCUTANEOUS
     Route: 058

REACTIONS (1)
  - BLOOD GLUCOSE INCREASED [None]
